FAERS Safety Report 22645358 (Version 6)
Quarter: 2024Q3

REPORT INFORMATION
  Report Type: Spontaneous
  Country: US (occurrence: US)
  Receive Date: 20230627
  Receipt Date: 20240923
  Transmission Date: 20241017
  Serious: No
  Sender: SANOFI AVENTIS
  Company Number: US-SA-SAC20230626001350

PATIENT
  Age: 55 Year
  Sex: Male

DRUGS (5)
  1. DUPIXENT [Suspect]
     Active Substance: DUPILUMAB
     Indication: Asthma
     Dosage: 300 MG, QOW
     Route: 058
     Dates: start: 20230516
  2. METFORMIN [Concomitant]
     Active Substance: METFORMIN HYDROCHLORIDE
     Dosage: UNK UNK, BID
  3. GLIPIZIDE [Concomitant]
     Active Substance: GLIPIZIDE
     Dosage: UNK UNK, QD
  4. JARDIANCE [Concomitant]
     Active Substance: EMPAGLIFLOZIN
  5. RYBELSUS [Concomitant]
     Active Substance: SEMAGLUTIDE
     Route: 065

REACTIONS (6)
  - Impaired quality of life [Unknown]
  - Burns second degree [Unknown]
  - Oropharyngeal pain [Unknown]
  - Asthma [Unknown]
  - Drug ineffective [Unknown]
  - Oral herpes [Unknown]

NARRATIVE: CASE EVENT DATE: 20230101
